FAERS Safety Report 6521084-0 (Version None)
Quarter: 2009Q4

REPORT INFORMATION
  Report Type: 
  Country: None (occurrence: None)
  Receive Date: 20091229
  Receipt Date: 20091223
  Transmission Date: 20100525
  Serious: Yes (Hospitalization)
  Sender: FDA-Public Use
  Company Number: IL-PFIZER INC-2009306352

PATIENT
  Age: 60 Year
  Sex: Female
  Weight: 64 kg

DRUGS (2)
  1. SITAXENTAN [Suspect]
     Indication: PULMONARY ARTERIAL HYPERTENSION
     Dosage: 100, 1X/DAY
     Route: 048
     Dates: start: 20050817
  2. REVATIO [Suspect]
     Indication: PULMONARY ARTERIAL HYPERTENSION
     Dosage: 20, 3X/DAY
     Route: 048
     Dates: start: 20081125

REACTIONS (4)
  - FLANK PAIN [None]
  - HYDRONEPHROSIS [None]
  - URETERAL NEOPLASM [None]
  - URETERIC CANCER [None]
